FAERS Safety Report 8507778 (Version 2)
Quarter: 2012Q4

REPORT INFORMATION
  Report Type: 
  Country: US (occurrence: US)
  Receive Date: 20120412
  Receipt Date: 20121120
  Transmission Date: 20130627
  Serious: No
  Sender: FDA-Public Use
  Company Number: US-ASTRAZENECA-2011SE14525

PATIENT
  Age: 58 Year
  Sex: Male

DRUGS (4)
  1. NEXIUM [Suspect]
     Route: 048
  2. PRILOSEC [Suspect]
     Route: 048
  3. ZANTAC [Concomitant]
  4. ACIPHEX [Concomitant]

REACTIONS (4)
  - Drug ineffective [Unknown]
  - Chest pain [Unknown]
  - Dyspepsia [Unknown]
  - Intentional drug misuse [Unknown]
